FAERS Safety Report 12574153 (Version 2)
Quarter: 2016Q4

REPORT INFORMATION
  Report Type: Spontaneous
  Country: US (occurrence: US)
  Receive Date: 20160720
  Receipt Date: 20161012
  Transmission Date: 20170207
  Serious: No
  Sender: FDA-Public Use
  Company Number: US-TEVA-669923USA

PATIENT
  Age: 59 Year
  Sex: Female

DRUGS (1)
  1. ZECUITY [Suspect]
     Active Substance: SUMATRIPTAN SUCCINATE
     Indication: MIGRAINE
     Route: 062
     Dates: start: 20160219, end: 20160219

REACTIONS (13)
  - Migraine [Recovered/Resolved]
  - Application site irritation [Recovered/Resolved]
  - Application site discolouration [Recovered/Resolved]
  - Wrong technique in product usage process [Recovered/Resolved]
  - Adverse event [Recovered/Resolved]
  - Product adhesion issue [Unknown]
  - Application site pruritus [Recovered/Resolved]
  - Vision blurred [Recovered/Resolved]
  - Application site erythema [Recovered/Resolved]
  - Application site bruise [Recovered/Resolved]
  - Application site pain [Recovered/Resolved]
  - Aphasia [Recovered/Resolved]
  - Drug ineffective [Unknown]

NARRATIVE: CASE EVENT DATE: 20160219
